FAERS Safety Report 26052902 (Version 1)
Quarter: 2025Q4

REPORT INFORMATION
  Report Type: Spontaneous
  Country: GB (occurrence: GB)
  Receive Date: 20251117
  Receipt Date: 20251117
  Transmission Date: 20260119
  Serious: Yes (Other)
  Sender: NOVARTIS
  Company Number: GB-002147023-NVSC2025GB140835

PATIENT
  Sex: Female
  Weight: 63 kg

DRUGS (1)
  1. ZOMETA [Suspect]
     Active Substance: ZOLEDRONIC ACID
     Indication: Adverse drug reaction
     Dosage: UNK (INFUSION EVERY 6 MONTHS, 6 MONTH,)
     Route: 065
     Dates: start: 20211221

REACTIONS (5)
  - Musculoskeletal stiffness [Not Recovered/Not Resolved]
  - Arthropathy [Recovering/Resolving]
  - Influenza like illness [Not Recovered/Not Resolved]
  - Dry eye [Recovering/Resolving]
  - Dry mouth [Recovering/Resolving]

NARRATIVE: CASE EVENT DATE: 20211222
